FAERS Safety Report 6873703-7 (Version None)
Quarter: 2010Q3

REPORT INFORMATION
  Report Type: 
  Country: None (occurrence: None)
  Receive Date: 20100723
  Receipt Date: 20090310
  Transmission Date: 20110219
  Serious: Yes (Other)
  Sender: FDA-Public Use
  Company Number: US-PFIZER INC-2009181637

PATIENT
  Sex: Male
  Weight: 108.84 kg

DRUGS (2)
  1. CHANTIX [Suspect]
     Indication: SMOKING CESSATION THERAPY
     Dosage: 1 MG, 2X/DAY
     Dates: start: 20090301, end: 20090308
  2. DRUG, UNSPECIFIED [Suspect]

REACTIONS (3)
  - HEADACHE [None]
  - HOT FLUSH [None]
  - INSOMNIA [None]
